FAERS Safety Report 6136654-1 (Version None)
Quarter: 2009Q1

REPORT INFORMATION
  Report Type: 
  Country: None (occurrence: None)
  Receive Date: 20090330
  Receipt Date: 20090320
  Transmission Date: 20090719
  Serious: Yes (Hospitalization)
  Sender: FDA-Public Use
  Company Number: B0566065A

PATIENT
  Age: 55 Year
  Sex: Female

DRUGS (3)
  1. AUGMENTIN XR [Suspect]
     Indication: SINUSITIS
     Dosage: 500MG TWICE PER DAY
  2. LEVOTHYROXINE SODIUM [Concomitant]
  3. ATORVASTATIN [Concomitant]

REACTIONS (9)
  - ABDOMINAL DISCOMFORT [None]
  - ABDOMINAL DISTENSION [None]
  - ABDOMINAL PAIN [None]
  - ABDOMINAL TENDERNESS [None]
  - DIARRHOEA HAEMORRHAGIC [None]
  - ENTEROCOLITIS HAEMORRHAGIC [None]
  - HAEMATOCRIT DECREASED [None]
  - HYPERPLASIA [None]
  - INFLAMMATION [None]
